FAERS Safety Report 11846376 (Version 1)
Quarter: 2015Q4

REPORT INFORMATION
  Report Type: Spontaneous
  Country: IT (occurrence: IT)
  Receive Date: 20151217
  Receipt Date: 20151217
  Transmission Date: 20160305
  Serious: Yes (Other)
  Sender: FDA-Public Use
  Company Number: IT-ROCHE-1678514

PATIENT
  Age: 43 Year
  Sex: Female

DRUGS (3)
  1. PERJETA [Suspect]
     Active Substance: PERTUZUMAB
     Indication: BREAST CANCER
     Dosage: 420 MG - VIAL (GLASS) - 30 MG/ML - 1 VIAL
     Route: 042
     Dates: start: 20151204, end: 20151204
  2. PACLITAXEL. [Suspect]
     Active Substance: PACLITAXEL
     Indication: BREAST CANCER
     Dosage: 6 MG/ML, 25 ML VIAL
     Route: 042
     Dates: start: 20151204, end: 20151204
  3. HERCEPTIN [Suspect]
     Active Substance: TRASTUZUMAB
     Indication: BREAST CANCER
     Dosage: 150 MG 1 VIAL FOR INTRAVENOUS USE
     Route: 042
     Dates: start: 20151204, end: 20151204

REACTIONS (3)
  - Hypersensitivity [Recovered/Resolved]
  - Throat tightness [Recovered/Resolved]
  - Flushing [Recovered/Resolved]

NARRATIVE: CASE EVENT DATE: 20151204
